FAERS Safety Report 18341839 (Version 1)
Quarter: 2020Q4

REPORT INFORMATION
  Report Type: Spontaneous
  Country: US (occurrence: US)
  Receive Date: 20201005
  Receipt Date: 20201005
  Transmission Date: 20210113
  Serious: No
  Sender: FDA-Public Use
  Company Number: US-STRIDES ARCOLAB LIMITED-2020SP008335

PATIENT
  Sex: Female

DRUGS (1)
  1. POTASSIUM CITRATE. [Suspect]
     Active Substance: POTASSIUM CITRATE
     Indication: RENAL LITHIASIS PROPHYLAXIS
     Dosage: 15 MILLIEQUIVALENT, 1 PILL IN THE MORNING AROUND 8-9 AND 2ND PILL IN THE EVENING ABOUT 9
     Route: 048

REACTIONS (1)
  - Product residue present [Unknown]
